FAERS Safety Report 12850653 (Version 1)
Quarter: 2016Q4

REPORT INFORMATION
  Report Type: Report from Study
  Country: US (occurrence: US)
  Receive Date: 20161014
  Receipt Date: 20161014
  Transmission Date: 20170207
  Serious: Yes (Hospitalization)
  Sender: FDA-Public Use
  Company Number: US-GILEAD-2016-0238451

PATIENT
  Age: 53 Year
  Sex: Female

DRUGS (8)
  1. AMBRISENTAN [Suspect]
     Active Substance: AMBRISENTAN
     Indication: PULMONARY HYPERTENSION
     Dosage: 5 MG, QD
     Route: 065
     Dates: start: 20160819
  2. VITAMIN D                          /00107901/ [Concomitant]
     Active Substance: ERGOCALCIFEROL
  3. LEXAPRO [Concomitant]
     Active Substance: ESCITALOPRAM OXALATE
  4. TRAMADOL. [Concomitant]
     Active Substance: TRAMADOL
  5. CLONIDINE. [Concomitant]
     Active Substance: CLONIDINE
  6. FUROSEMIDE. [Concomitant]
     Active Substance: FUROSEMIDE
  7. BENICAR [Concomitant]
     Active Substance: OLMESARTAN MEDOXOMIL
  8. VITAMIN B12 [Concomitant]
     Active Substance: CYANOCOBALAMIN

REACTIONS (2)
  - Dyspnoea [Not Recovered/Not Resolved]
  - Peripheral swelling [Not Recovered/Not Resolved]

NARRATIVE: CASE EVENT DATE: 20160929
